FAERS Safety Report 16182564 (Version 2)
Quarter: 2019Q2

REPORT INFORMATION
  Report Type: Report from Study
  Country: CN (occurrence: CN)
  Receive Date: 20190411
  Receipt Date: 20190508
  Transmission Date: 20190711
  Serious: Yes (Hospitalization)
  Sender: FDA-Public Use
  Company Number: CN-AMGEN-CHNCT2019055195

PATIENT
  Age: 45 Year
  Sex: Male

DRUGS (13)
  1. NIFEDIPINE. [Concomitant]
     Active Substance: NIFEDIPINE
     Indication: HYPERTENSION
     Dosage: 30 MILLIGRAM, QD
     Route: 048
     Dates: start: 20180803
  2. PERINDOPRIL TERT BUTYLAMINE [Concomitant]
     Active Substance: PERINDOPRIL ERBUMINE
     Indication: HYPERTENSION
     Dosage: 4 MILLIGRAM, QD
     Route: 048
     Dates: start: 20190302
  3. CINACALCET HCL [Suspect]
     Active Substance: CINACALCET HYDROCHLORIDE
     Dosage: 25 MILLIGRAM
     Route: 048
     Dates: start: 20180808, end: 20190324
  4. CINACALCET HCL [Suspect]
     Active Substance: CINACALCET HYDROCHLORIDE
     Indication: HYPERPARATHYROIDISM SECONDARY
     Dosage: 25 MILLIGRAM
     Route: 048
     Dates: start: 20180418, end: 20180710
  5. L-CARNITINE;SIBUTRAMINE [Concomitant]
     Indication: CARNITINE ABNORMAL
     Dosage: 1 GRAM, 3 TIMES/WK
     Route: 042
     Dates: start: 20180829, end: 20190322
  6. MECOBALAMIN [Concomitant]
     Active Substance: METHYLCOBALAMIN
     Indication: NUTRITIONAL CONDITION ABNORMAL
     Dosage: 1 DOSAGE FORM, TID
     Route: 048
     Dates: start: 20190121
  7. CALCITRIOL. [Concomitant]
     Active Substance: CALCITRIOL
     Indication: HYPERPARATHYROIDISM SECONDARY
     Dosage: 0.5 MICROGRAM, 3 TIMES/WK
     Route: 048
     Dates: start: 20180511
  8. CINACALCET HCL [Suspect]
     Active Substance: CINACALCET HYDROCHLORIDE
     Dosage: 50 MILLIGRAM
     Route: 048
     Dates: start: 20180711, end: 20180807
  9. ESTAZOLAM. [Concomitant]
     Active Substance: ESTAZOLAM
     Indication: SLEEP DISORDER
     Dosage: 1 TABLET QN
     Route: 048
     Dates: start: 20181224
  10. METOPROLOL. [Concomitant]
     Active Substance: METOPROLOL
     Indication: HYPERTENSION
     Dosage: 23.75 MILLIGRAM, QD
     Route: 048
     Dates: start: 20190313
  11. NIFEDIPINE. [Concomitant]
     Active Substance: NIFEDIPINE
     Dosage: 30 MILLIGRAM, QD
     Route: 048
     Dates: start: 20180111
  12. HEPARIN [Concomitant]
     Active Substance: HEPARIN SODIUM
     Indication: AZOTAEMIA
     Dosage: 0.3 MILLILITER, TID
     Route: 042
     Dates: start: 20171121, end: 20190322
  13. SEVELAMER [Concomitant]
     Active Substance: SEVELAMER
     Indication: HYPERPHOSPHATAEMIA
     Dosage: 0.8 GRAM, TID
     Route: 048
     Dates: start: 20180113

REACTIONS (1)
  - End stage renal disease [Recovered/Resolved]

NARRATIVE: CASE EVENT DATE: 20190324
